FAERS Safety Report 23398024 (Version 1)
Quarter: 2024Q1

REPORT INFORMATION
  Report Type: Spontaneous
  Country: GB (occurrence: GB)
  Receive Date: 20240112
  Receipt Date: 20240112
  Transmission Date: 20240409
  Serious: Yes (Disabling)
  Sender: FDA-Public Use
  Company Number: None

PATIENT
  Age: 89 Year
  Weight: 74 kg

DRUGS (10)
  1. TRIMETHOPRIM [Suspect]
     Active Substance: TRIMETHOPRIM
     Route: 065
     Dates: start: 20231220
  2. BRINZOLAMIDE [Concomitant]
     Active Substance: BRINZOLAMIDE
     Dosage: DROP IN BOTH EYES
     Dates: start: 20210218
  3. BIMATOPROST [Concomitant]
     Active Substance: BIMATOPROST
     Dosage: DROP INTO BOTH EYES AT NIGHT
     Dates: start: 20210218
  4. CALCIUM CARBONATE\CHOLECALCIFEROL [Concomitant]
     Active Substance: CALCIUM CARBONATE\CHOLECALCIFEROL
     Dosage: INSTEAD OF ADCAL
     Dates: start: 20210218
  5. ATORVASTATIN [Concomitant]
     Active Substance: ATORVASTATIN
     Dates: start: 20210218
  6. AMLODIPINE [Concomitant]
     Active Substance: AMLODIPINE BESYLATE
     Dates: start: 20210218
  7. ACIDEX ADVANCE HEARTBURN AND INDIGESTION RELIEF [Concomitant]
     Dosage: 5ML - 10ML
     Dates: start: 20231009, end: 20231106
  8. ASPIRIN [Concomitant]
     Active Substance: ASPIRIN
     Dates: start: 20210422
  9. LOSARTAN [Concomitant]
     Active Substance: LOSARTAN
     Dates: start: 20211101
  10. LANSOPRAZOLE [Concomitant]
     Active Substance: LANSOPRAZOLE
     Dates: start: 20210218

REACTIONS (1)
  - Dizziness [Recovered/Resolved]

NARRATIVE: CASE EVENT DATE: 20231221
